FAERS Safety Report 12586751 (Version 1)
Quarter: 2016Q3

REPORT INFORMATION
  Report Type: Spontaneous
  Country: US (occurrence: None)
  Receive Date: 20160722
  Receipt Date: 20160722
  Transmission Date: 20161109
  Serious: Yes (Life-Threatening, Hospitalization)
  Sender: FDA-Public Use
  Company Number: None

PATIENT
  Age: 15 Year
  Sex: Female
  Weight: 31 kg

DRUGS (1)
  1. SUCCINYLCHOLINE, 20 MG/ML [Suspect]
     Active Substance: SUCCINYLCHOLINE
     Indication: ANAESTHESIA
     Route: 040

REACTIONS (1)
  - Hyperthermia malignant [None]

NARRATIVE: CASE EVENT DATE: 20160720
